FAERS Safety Report 4715427-8 (Version None)
Quarter: 2005Q3

REPORT INFORMATION
  Report Type: 
  Country: None (occurrence: None)
  Receive Date: 20050715
  Receipt Date: 20050715
  Transmission Date: 20060218
  Serious: No
  Sender: FDA-Public Use
  Company Number: None

PATIENT
  Age: 62 Year
  Sex: Female
  Weight: 62.3 kg

DRUGS (2)
  1. CARBOPLATIN [Suspect]
     Indication: OVARIAN CANCER
     Dosage: 642 MG IV Q 3 WEEKS
     Route: 042
     Dates: start: 20050623
  2. CARBOPLATIN [Suspect]
     Indication: OVARIAN CANCER
     Dosage: 642 MG IV Q 3 WEEKS
     Route: 042
     Dates: start: 20050714

REACTIONS (5)
  - COUGH [None]
  - DYSPNOEA [None]
  - FEELING HOT [None]
  - INFUSION RELATED REACTION [None]
  - RETCHING [None]
